FAERS Safety Report 15560176 (Version 1)
Quarter: 2018Q4

REPORT INFORMATION
  Report Type: Spontaneous
  Country: US (occurrence: US)
  Receive Date: 20181022
  Receipt Date: 20181022
  Transmission Date: 20190205
  Serious: Yes (Other)
  Sender: FDA-Public Use
  Company Number: None

PATIENT
  Age: 28 Year
  Sex: Male
  Weight: 58.3 kg

DRUGS (2)
  1. BUPRENORPHINE AND NALOXONE [Suspect]
     Active Substance: BUPRENORPHINE\NALOXONE
     Dosage: ?          OTHER DOSE:8-2 MG;?
     Route: 060
     Dates: start: 20181019
  2. BUPRENORPHINE AND NALOXONE [Suspect]
     Active Substance: BUPRENORPHINE\NALOXONE
     Indication: DRUG DEPENDENCE
     Dosage: ?          OTHER DOSE:8-2 MG;?
     Route: 060
     Dates: start: 20181018

REACTIONS (3)
  - Dizziness [None]
  - Nausea [None]
  - Formication [None]

NARRATIVE: CASE EVENT DATE: 20181018
